FAERS Safety Report 6121464-1 (Version None)
Quarter: 2009Q1

REPORT INFORMATION
  Report Type: 
  Country: None (occurrence: None)
  Receive Date: 20090317
  Receipt Date: 20090306
  Transmission Date: 20090719
  Serious: Yes (Hospitalization, Other)
  Sender: FDA-Public Use
  Company Number: PHHY2009CH08233

PATIENT
  Age: 44 Year
  Sex: Male

DRUGS (5)
  1. SANDIMMUNE [Suspect]
     Indication: RENAL TRANSPLANT
     Dosage: 50 MG/DAY
     Dates: start: 20020101, end: 20081215
  2. MYFORTIC [Suspect]
     Indication: RENAL TRANSPLANT
     Dosage: 360 MG/DAY
     Dates: end: 20081208
  3. VALPROATE SODIUM [Suspect]
     Indication: EPILEPSY
     Dosage: 900 MG/DAY
     Dates: start: 20081010, end: 20081212
  4. NEBILET [Concomitant]
     Dosage: 2.5 MG/DAY
  5. ASPIRIN [Concomitant]
     Dosage: 100 MG/DAY

REACTIONS (8)
  - ANAEMIA [None]
  - BONE MARROW FAILURE [None]
  - EPILEPSY [None]
  - INFECTION [None]
  - LEUKOPENIA [None]
  - NEUTROPENIA [None]
  - PANCYTOPENIA [None]
  - THROMBOCYTOPENIA [None]
